FAERS Safety Report 5939843-1 (Version None)
Quarter: 2008Q4

REPORT INFORMATION
  Report Type: 
  Country: None (occurrence: None)
  Receive Date: 20081030
  Receipt Date: 20081030
  Transmission Date: 20090506
  Serious: Yes (Life-Threatening, Hospitalization)
  Sender: FDA-Public Use
  Company Number: None

PATIENT
  Age: 53 Year
  Sex: Female
  Weight: 99.3377 kg

DRUGS (3)
  1. CYMBALTA [Suspect]
     Indication: DEPRESSION
     Dosage: 2- 30 MG CAPSULES DAILY IN THE AM PO
     Route: 048
     Dates: start: 20070707, end: 20081013
  2. CARBIDOPA LEVIDOPA [Concomitant]
  3. CLONAZEPAM [Concomitant]

REACTIONS (6)
  - ARTERIAL INJURY [None]
  - BIPOLAR DISORDER [None]
  - GAMBLING [None]
  - INTENTIONAL SELF-INJURY [None]
  - MULTIPLE DRUG OVERDOSE INTENTIONAL [None]
  - SUICIDE ATTEMPT [None]
